FAERS Safety Report 11828950 (Version 4)
Quarter: 2016Q1

REPORT INFORMATION
  Report Type: Report from Study
  Country: BR (occurrence: BR)
  Receive Date: 20151211
  Receipt Date: 20160308
  Transmission Date: 20160525
  Serious: Yes (Hospitalization, Other)
  Sender: FDA-Public Use
  Company Number: BR-ABBVIE-15K-020-1514704-00

PATIENT
  Sex: Male
  Weight: 76 kg

DRUGS (2)
  1. HUMIRA [Suspect]
     Active Substance: ADALIMUMAB
     Indication: ANKYLOSING SPONDYLITIS
     Route: 058
     Dates: start: 20120309
  2. HUMIRA [Suspect]
     Active Substance: ADALIMUMAB
     Route: 058

REACTIONS (6)
  - Pain [Unknown]
  - Keloid scar [Recovering/Resolving]
  - Lip neoplasm malignant stage unspecified [Recovered/Resolved]
  - Excessive skin [Unknown]
  - Post procedural swelling [Unknown]
  - Mass [Recovering/Resolving]

NARRATIVE: CASE EVENT DATE: 2015
